FAERS Safety Report 9602210 (Version 2)
Quarter: 2013Q4

REPORT INFORMATION
  Report Type: Spontaneous
  Country: GB (occurrence: None)
  Receive Date: 20131003
  Receipt Date: 20131015
  Transmission Date: 20140711
  Serious: Yes (Other)
  Sender: FDA-Public Use
  Company Number: KAD201309-001274

PATIENT
  Age: 47 Year
  Sex: Female

DRUGS (3)
  1. RIBAVIRIN [Suspect]
     Indication: HEPATITIS C
     Route: 048
     Dates: start: 201302
  2. INCIVO [Suspect]
     Indication: HEPATITIS C
     Dates: start: 20130221
  3. PEGINTERFERON ALFA-2B [Suspect]
     Indication: HEPATITIS C
     Dosage: INJECTION, ONCE WEEKLY, SUBCUTANEOUS
     Route: 058
     Dates: start: 201302

REACTIONS (4)
  - Proctalgia [None]
  - Pruritus [None]
  - Fatigue [None]
  - Weight increased [None]
